FAERS Safety Report 8558411-9 (Version None)
Quarter: 2012Q3

REPORT INFORMATION
  Report Type: 
  Country: None (occurrence: None)
  Receive Date: 20120801
  Receipt Date: 20120717
  Transmission Date: 20120928
  Serious: No
  Sender: FDA-Public Use
  Company Number: US-ASTRAZENECA-2012SE50360

PATIENT
  Age: 61 Year
  Sex: Female

DRUGS (1)
  1. SEROQUEL [Suspect]
     Indication: BIPOLAR DISORDER
     Dosage: 50 MG DURING THE DAY AND 400 MG AT BEDTIME
     Route: 048

REACTIONS (3)
  - FIBROMYALGIA [None]
  - BURSITIS [None]
  - MALAISE [None]
